FAERS Safety Report 25897764 (Version 2)
Quarter: 2025Q4

REPORT INFORMATION
  Report Type: Spontaneous
  Country: US (occurrence: US)
  Receive Date: 20251008
  Receipt Date: 20251009
  Transmission Date: 20260117
  Serious: No
  Sender: PFIZER
  Company Number: US-PFIZER INC-202500198719

PATIENT
  Age: 74 Year
  Sex: Female

DRUGS (1)
  1. METHOTREXATE SODIUM [Suspect]
     Active Substance: METHOTREXATE SODIUM
     Indication: Eosinophilic fasciitis
     Dosage: 25 MG/ML, 2 ML VIAL

REACTIONS (5)
  - Therapeutic response unexpected [Unknown]
  - Off label use [Unknown]
  - Poor quality product administered [Unknown]
  - Product contamination [Unknown]
  - Malaise [Unknown]
